FAERS Safety Report 16062020 (Version 2)
Quarter: 2019Q1

REPORT INFORMATION
  Report Type: Spontaneous
  Country: FR (occurrence: FR)
  Receive Date: 20190312
  Receipt Date: 20190320
  Transmission Date: 20190418
  Serious: Yes (Hospitalization, Other)
  Sender: FDA-Public Use
  Company Number: FR-ALKEM LABORATORIES LIMITED-FR-ALKEM-2019-01948

PATIENT
  Age: 44 Year
  Sex: Male

DRUGS (3)
  1. METHADONE HYDROCHLORIDE. [Suspect]
     Active Substance: METHADONE HYDROCHLORIDE
     Indication: DRUG DEPENDENCE
     Dosage: 120 MG, QD  FOR SEVERAL MONTHS
     Route: 065
  2. MIDAZOLAM [Concomitant]
     Active Substance: MIDAZOLAM HYDROCHLORIDE
     Indication: SEDATION
     Dosage: 10 MG, UNK
     Route: 042
  3. NALTREXONE [Suspect]
     Active Substance: NALTREXONE
     Indication: ALCOHOL USE
     Dosage: 50 MG, PER DAY
     Route: 048

REACTIONS (3)
  - Drug withdrawal syndrome [Unknown]
  - Stress cardiomyopathy [Unknown]
  - Drug interaction [Unknown]
